FAERS Safety Report 15365737 (Version 1)
Quarter: 2018Q3

REPORT INFORMATION
  Report Type: Spontaneous
  Country: US (occurrence: US)
  Receive Date: 20180831
  Receipt Date: 20180831
  Transmission Date: 20181010
  Serious: Yes (Life-Threatening, Hospitalization, Disabling)
  Sender: FDA-Public Use
  Company Number: None

PATIENT
  Age: 61 Year
  Sex: Female
  Weight: 113.4 kg

DRUGS (3)
  1. CHILDRENS ALLERGY MELTS [Suspect]
     Active Substance: DIPHENHYDRAMINE HYDROCHLORIDE
     Indication: PHARYNGEAL OEDEMA
     Dosage: ?          QUANTITY:1 MG MILLIGRAM(S);?
     Route: 048
  2. CHILDRENS ALLERGY MELTS [Suspect]
     Active Substance: DIPHENHYDRAMINE HYDROCHLORIDE
     Indication: SINUS DISORDER
     Dosage: ?          QUANTITY:1 MG MILLIGRAM(S);?
     Route: 048
  3. CHILDRENS ALLERGY MELTS [Suspect]
     Active Substance: DIPHENHYDRAMINE HYDROCHLORIDE
     Indication: PRURITUS
     Dosage: ?          QUANTITY:1 MG MILLIGRAM(S);?
     Route: 048

REACTIONS (3)
  - Loose tooth [None]
  - Tooth fracture [None]
  - Aptyalism [None]
